FAERS Safety Report 6663914-8 (Version None)
Quarter: 2010Q2

REPORT INFORMATION
  Report Type: 
  Country: None (occurrence: None)
  Receive Date: 20100401
  Receipt Date: 20100330
  Transmission Date: 20101027
  Serious: Yes (Other)
  Sender: FDA-Public Use
  Company Number: US-TEVA-229317USA

PATIENT
  Sex: Male
  Weight: 108.96 kg

DRUGS (1)
  1. BECLOMETHASONE DIPROPIONATE [Suspect]
     Indication: ASTHMA
     Dosage: BID
     Route: 055
     Dates: start: 20100322, end: 20100329

REACTIONS (2)
  - CONVULSION [None]
  - NERVOUSNESS [None]
